FAERS Safety Report 7380133-0 (Version None)
Quarter: 2011Q1

REPORT INFORMATION
  Report Type: 
  Country: None (occurrence: None)
  Receive Date: 20110329
  Receipt Date: 20100802
  Transmission Date: 20110831
  Serious: No
  Sender: FDA-Public Use
  Company Number: US-MYLANLABS-2010S1011039

PATIENT
  Age: 47 Year
  Sex: Female

DRUGS (2)
  1. ESTRADIOL [Suspect]
     Indication: HORMONE REPLACEMENT THERAPY
     Dosage: CHANGED QW
     Route: 062
     Dates: start: 20090720, end: 20100722
  2. PROMETRIUM [Concomitant]
     Indication: HORMONE REPLACEMENT THERAPY

REACTIONS (8)
  - APPLICATION SITE PAIN [None]
  - APPLICATION SITE RASH [None]
  - DRUG EFFECT DECREASED [None]
  - FLUSHING [None]
  - APPLICATION SITE PRURITUS [None]
  - HEADACHE [None]
  - APPLICATION SITE BURN [None]
  - APPLICATION SITE ERYTHEMA [None]
